FAERS Safety Report 4477476-7 (Version None)
Quarter: 2004Q4

REPORT INFORMATION
  Report Type: 
  Country: None (occurrence: None)
  Receive Date: 20041004
  Receipt Date: 20040203
  Transmission Date: 20050328
  Serious: Yes (Hospitalization)
  Sender: FDA-Public Use
  Company Number: 2004-112645-NL

PATIENT
  Age: 64 Year
  Sex: Male
  Weight: 72.7 kg

DRUGS (6)
  1. TICE BCG [Suspect]
     Indication: BLADDER CANCER
     Dosage: DF INTRAVESCAL
     Route: 043
     Dates: start: 19980101, end: 19980101
  2. TICE BCG [Suspect]
     Indication: BLADDER CANCER
     Dosage: DF INTRAVESICAL
     Route: 043
     Dates: start: 19990101
  3. COUMADIN [Concomitant]
  4. PROTONIX [Concomitant]
  5. MS CONTIN [Concomitant]
  6. GLUCOTROL [Concomitant]

REACTIONS (1)
  - TUBERCULOSIS [None]
